FAERS Safety Report 7573925-6 (Version None)
Quarter: 2011Q2

REPORT INFORMATION
  Report Type: 
  Country: None (occurrence: None)
  Receive Date: 20110627
  Receipt Date: 20110624
  Transmission Date: 20111010
  Serious: Yes (Death)
  Sender: FDA-Public Use
  Company Number: Z0004171A

PATIENT
  Sex: Female
  Weight: 54 kg

DRUGS (1)
  1. PAZOPANIB [Suspect]
     Indication: INFLAMMATORY CARCINOMA OF THE BREAST
     Dosage: 800MG PER DAY
     Route: 048
     Dates: start: 20100128

REACTIONS (4)
  - PNEUMONIA [None]
  - PULMONARY OEDEMA [None]
  - CARDIOPULMONARY FAILURE [None]
  - LOBAR PNEUMONIA [None]
